FAERS Safety Report 7547388-0 (Version None)
Quarter: 2011Q2

REPORT INFORMATION
  Report Type: 
  Country: None (occurrence: None)
  Receive Date: 20110614
  Receipt Date: 20110608
  Transmission Date: 20111010
  Serious: Yes (Death, Other)
  Sender: FDA-Public Use
  Company Number: JP-CEPHALON-2011001285

PATIENT
  Sex: Male
  Weight: 60 kg

DRUGS (9)
  1. SULFAMETHOXAZOLE AND TRIMETHOPRIM [Concomitant]
     Dates: end: 20110216
  2. CEFEPIME HYDROCHLORIDE [Concomitant]
     Dates: start: 20110126, end: 20110203
  3. HYDROCORTISONE SODIUM PHOSPHATE [Concomitant]
     Dates: start: 20110126, end: 20110301
  4. LANSOPRAZOLE [Concomitant]
     Dates: end: 20110216
  5. BENDAMUSTINE HCL [Suspect]
     Route: 042
     Dates: start: 20110228, end: 20110301
  6. BENDAMUSTINE HCL [Suspect]
     Indication: MANTLE CELL LYMPHOMA RECURRENT
     Route: 042
     Dates: start: 20110126, end: 20110127
  7. CLOSTRIDIUM BUTYRICUM [Concomitant]
     Dates: end: 20110216
  8. GRANISETRON HCL [Concomitant]
     Dates: start: 20110126, end: 20110301
  9. ALLOPURINOL [Concomitant]
     Dates: start: 20110125, end: 20110125

REACTIONS (6)
  - HERPES ZOSTER [None]
  - NEUTROPHIL COUNT DECREASED [None]
  - HYPOKALAEMIA [None]
  - LYMPHOCYTE COUNT DECREASED [None]
  - SHOCK HAEMORRHAGIC [None]
  - PLATELET COUNT DECREASED [None]
